FAERS Safety Report 9824186 (Version 1)
Quarter: 2014Q1

REPORT INFORMATION
  Report Type: Spontaneous
  Country: JP (occurrence: JP)
  Receive Date: 20140116
  Receipt Date: 20140116
  Transmission Date: 20141002
  Serious: Yes (Other)
  Sender: FDA-Public Use
  Company Number: JP-GLAXOSMITHKLINE-B0960651A

PATIENT
  Sex: 0

DRUGS (2)
  1. ZOVIRAX [Suspect]
     Indication: HERPES ZOSTER
     Route: 042
     Dates: start: 20140106, end: 20140110
  2. ATARAX [Concomitant]

REACTIONS (4)
  - Suicidal ideation [Unknown]
  - Depressed level of consciousness [Unknown]
  - Vision blurred [Unknown]
  - Mental disorder [Unknown]
